FAERS Safety Report 5749550-6 (Version None)
Quarter: 2008Q2

REPORT INFORMATION
  Report Type: 
  Country: None (occurrence: None)
  Receive Date: 20080527
  Receipt Date: 20080506
  Transmission Date: 20081010
  Serious: Yes (Other)
  Sender: FDA-Public Use
  Company Number: IL-AMGEN-UK280567

PATIENT
  Sex: Female

DRUGS (7)
  1. ARANESP [Suspect]
     Indication: RENAL FAILURE CHRONIC
     Route: 042
     Dates: start: 20050101
  2. INSULIN [Concomitant]
  3. FUSIDIC ACID [Concomitant]
  4. FOLIC ACID [Concomitant]
  5. VENOFER [Concomitant]
  6. TUMS [Concomitant]
  7. LERCANIDIPINE [Concomitant]

REACTIONS (2)
  - ANAEMIA [None]
  - BONE MARROW FAILURE [None]
